FAERS Safety Report 8376082-1 (Version None)
Quarter: 2012Q2

REPORT INFORMATION
  Report Type: 
  Country: None (occurrence: None)
  Receive Date: 20120517
  Receipt Date: 20120507
  Transmission Date: 20120825
  Serious: Yes (Other)
  Sender: FDA-Public Use
  Company Number: 2012SP024336

PATIENT

DRUGS (2)
  1. REBETOL [Suspect]
     Indication: PRODUCT USED FOR UNKNOWN INDICATION
  2. PEGINTERFERON ALFA-2B [Suspect]
     Indication: PRODUCT USED FOR UNKNOWN INDICATION

REACTIONS (2)
  - NEUROLOGICAL SYMPTOM [None]
  - GUILLAIN-BARRE SYNDROME [None]
